FAERS Safety Report 20746918 (Version 2)
Quarter: 2022Q3

REPORT INFORMATION
  Report Type: Spontaneous
  Country: US (occurrence: US)
  Receive Date: 20220425
  Receipt Date: 20220817
  Transmission Date: 20221026
  Serious: No
  Sender: FDA-Public Use
  Company Number: US-ELI_LILLY_AND_COMPANY-US202204006713

PATIENT
  Sex: Female
  Weight: 77.098 kg

DRUGS (3)
  1. ADCIRCA [Suspect]
     Active Substance: TADALAFIL
     Indication: Product used for unknown indication
     Dosage: UNK, UNKNOWN
     Route: 065
     Dates: start: 202203
  2. REMODULIN [Concomitant]
     Active Substance: TREPROSTINIL
     Indication: Product used for unknown indication
     Dosage: 21 NG/KG/MN
     Route: 042
     Dates: start: 20211110
  3. TREPROSTINIL [Concomitant]
     Active Substance: TREPROSTINIL
     Indication: Product used for unknown indication
     Dosage: UNK, UNKNOWN
     Route: 065

REACTIONS (6)
  - Arthralgia [Unknown]
  - Pain in jaw [Unknown]
  - Gait disturbance [Unknown]
  - Liver function test increased [Unknown]
  - Vision blurred [Unknown]
  - Hypotension [Unknown]
